FAERS Safety Report 9617102 (Version 1)
Quarter: 2013Q4

REPORT INFORMATION
  Report Type: Spontaneous
  Country: US (occurrence: US)
  Receive Date: 20131011
  Receipt Date: 20131011
  Transmission Date: 20140711
  Serious: No
  Sender: FDA-Public Use
  Company Number: US-TARO-2013P1005372

PATIENT
  Age: 4 Year
  Sex: Male
  Weight: 23.59 kg

DRUGS (1)
  1. LORATADINE SYRUP (LORATADINE ORAL SOLUTION USP) 5MG/5ML [Suspect]
     Route: 048
     Dates: start: 20130426, end: 20130428

REACTIONS (2)
  - Ocular hyperaemia [Unknown]
  - Off label use [Unknown]
